FAERS Safety Report 20662884 (Version 1)
Quarter: 2022Q2

REPORT INFORMATION
  Report Type: Spontaneous
  Country: AR (occurrence: AR)
  Receive Date: 20220401
  Receipt Date: 20220401
  Transmission Date: 20220720
  Serious: Yes (Other)
  Sender: FDA-Public Use
  Company Number: AR-NOVARTISPH-NVSC2022AR073073

PATIENT
  Sex: Male

DRUGS (1)
  1. RITALIN LA [Suspect]
     Active Substance: METHYLPHENIDATE HYDROCHLORIDE
     Indication: Attention deficit hyperactivity disorder
     Dosage: 3 DOSAGE FORM, QD (2 TO 3 TABLETS OF 30 MG)
     Route: 065

REACTIONS (4)
  - Facial bones fracture [Unknown]
  - Abnormal behaviour [Unknown]
  - Product availability issue [Unknown]
  - Incorrect dosage administered [Unknown]
